FAERS Safety Report 9790206 (Version 2)
Quarter: 2014Q1

REPORT INFORMATION
  Report Type: Report from Study
  Country: CA (occurrence: CA)
  Receive Date: 20131231
  Receipt Date: 20140103
  Transmission Date: 20141002
  Serious: Yes (Hospitalization, Other)
  Sender: FDA-Public Use
  Company Number: CA-JNJFOC-20131213411

PATIENT
  Age: 49 Year
  Sex: Female
  Weight: 100 kg

DRUGS (12)
  1. REMICADE [Suspect]
     Indication: PSORIASIS
     Route: 042
     Dates: start: 20130808
  2. REMICADE [Suspect]
     Indication: PSORIASIS
     Route: 042
     Dates: start: 20131224, end: 20131224
  3. ACCURETIC [Concomitant]
     Dosage: 20/25 MG
     Route: 065
  4. AMLODIPINE [Concomitant]
     Route: 048
  5. VENLAFAXINE XR [Concomitant]
     Route: 048
  6. VENLAFAXINE XR [Concomitant]
     Route: 048
  7. SYNTHROID [Concomitant]
     Route: 048
  8. VICTOZA [Concomitant]
     Route: 058
  9. ZYLOPRIM [Concomitant]
     Route: 048
  10. TAMSULOSIN [Concomitant]
     Route: 048
  11. METFORMIN [Concomitant]
     Route: 048
  12. DOVOBET [Concomitant]
     Route: 065

REACTIONS (2)
  - Infusion related reaction [Recovered/Resolved]
  - Stress [Not Recovered/Not Resolved]
